FAERS Safety Report 5726300-0 (Version None)
Quarter: 2008Q2

REPORT INFORMATION
  Report Type: 
  Country: None (occurrence: None)
  Receive Date: 20080502
  Receipt Date: 20080423
  Transmission Date: 20081010
  Serious: Yes (Hospitalization)
  Sender: FDA-Public Use
  Company Number: US-BAXTER-2008BH004495

PATIENT
  Age: 23 Year
  Sex: Male

DRUGS (2)
  1. PHENYLEPHRINE HYDROCHLORIDE [Suspect]
     Indication: PRIAPISM
     Route: 011
  2. LIDOCAINE [Concomitant]
     Indication: NERVE BLOCK
     Dosage: DOSE UNIT:UNKNOWN
     Route: 011

REACTIONS (1)
  - SUBARACHNOID HAEMORRHAGE [None]
